FAERS Safety Report 6412474-5 (Version None)
Quarter: 2009Q4

REPORT INFORMATION
  Report Type: 
  Country: None (occurrence: None)
  Receive Date: 20091023
  Receipt Date: 20091014
  Transmission Date: 20100525
  Serious: Yes (Hospitalization, Disabling)
  Sender: FDA-Public Use
  Company Number: JP-WYE-G04343209

PATIENT
  Sex: Female

DRUGS (5)
  1. LANSOPRAZOLE [Suspect]
     Indication: MUCOSAL EROSION
     Route: 048
     Dates: end: 20090819
  2. DOPS [Concomitant]
     Indication: ORTHOSTATIC HYPOTENSION
     Route: 048
     Dates: end: 20090819
  3. CLARITH [Suspect]
     Indication: BRONCHITIS CHRONIC
     Route: 048
     Dates: end: 20090813
  4. CLARITH [Suspect]
     Indication: PNEUMONIA
  5. THYRADIN S [Concomitant]
     Indication: HYPOTHYROIDISM
     Route: 048

REACTIONS (1)
  - JAUNDICE CHOLESTATIC [None]
